FAERS Safety Report 9685882 (Version 1)
Quarter: 2013Q4

REPORT INFORMATION
  Report Type: Spontaneous
  Country: US (occurrence: US)
  Receive Date: 20131113
  Receipt Date: 20131113
  Transmission Date: 20140711
  Serious: No
  Sender: FDA-Public Use
  Company Number: US-BAYER-2013-138077

PATIENT
  Age: 67 Year
  Sex: Male
  Weight: 83.9 kg

DRUGS (2)
  1. ALEVE TABLET [Suspect]
     Dosage: 2 DF, QD
     Route: 048
     Dates: start: 2011, end: 20131111
  2. PRAVASTATIN [Concomitant]
     Dosage: UNK

REACTIONS (1)
  - Incorrect drug administration duration [None]
